APPROVED DRUG PRODUCT: GABAPENTIN
Active Ingredient: GABAPENTIN
Strength: 300MG
Dosage Form/Route: CAPSULE;ORAL
Application: A090858 | Product #002 | TE Code: AB
Applicant: ALKEM LABORATORIES LTD
Approved: Dec 17, 2010 | RLD: No | RS: No | Type: RX